FAERS Safety Report 17053790 (Version 1)
Quarter: 2019Q4

REPORT INFORMATION
  Report Type: Spontaneous
  Country: US (occurrence: US)
  Receive Date: 20191120
  Receipt Date: 20191120
  Transmission Date: 20200122
  Serious: No
  Sender: FDA-Public Use
  Company Number: US-PRINSTON PHARMACEUTICAL INC.-2019PRN00778

PATIENT
  Age: 49 Year
  Sex: Female
  Weight: 92.97 kg

DRUGS (2)
  1. PAROXETINE. [Suspect]
     Active Substance: PAROXETINE
     Indication: HOT FLUSH
     Dosage: 7.5 MG, 1X/DAY
     Route: 048
     Dates: start: 20190824, end: 20190825
  2. PAROXETINE. [Suspect]
     Active Substance: PAROXETINE
     Dosage: 0.5 CAPSULES, 1X/DAY
     Route: 048
     Dates: start: 20190826

REACTIONS (7)
  - Vision blurred [Recovered/Resolved]
  - Intentional underdose [Not Recovered/Not Resolved]
  - Somnolence [Recovered/Resolved]
  - Wrong technique in product usage process [Not Recovered/Not Resolved]
  - Muscular weakness [Recovered/Resolved]
  - Insomnia [Recovered/Resolved]
  - Nausea [Recovered/Resolved]

NARRATIVE: CASE EVENT DATE: 201908
